FAERS Safety Report 6704955-1 (Version None)
Quarter: 2010Q2

REPORT INFORMATION
  Report Type: 
  Country: None (occurrence: None)
  Receive Date: 20100430
  Receipt Date: 20100128
  Transmission Date: 20101027
  Serious: No
  Sender: FDA-Public Use
  Company Number: US-ASTRAZENECA-2010SE03983

PATIENT
  Age: 80 Year
  Sex: Female
  Weight: 65.3 kg

DRUGS (5)
  1. NEXIUM [Suspect]
     Route: 048
  2. TRILIPIX [Concomitant]
  3. TENORMIN [Concomitant]
  4. ZOCOR [Concomitant]
  5. ASPIRIN [Concomitant]

REACTIONS (3)
  - DIARRHOEA [None]
  - HYPOMAGNESAEMIA [None]
  - MUSCLE SPASMS [None]
